FAERS Safety Report 10431700 (Version 1)
Quarter: 2014Q3

REPORT INFORMATION
  Report Type: Spontaneous
  Country: TR (occurrence: None)
  Receive Date: 20140903
  Receipt Date: 20140903
  Transmission Date: 20150326
  Serious: Yes (Congenital Anomaly, Other)
  Sender: FDA-Public Use
  Company Number: FK201403398

PATIENT

DRUGS (1)
  1. DIMENHYDRINATE INJECTION (MANUFACTURER UNKNOWN) (DIMENHYDRINATE) (DIMENHYDRINATE) [Suspect]
     Active Substance: DIMENHYDRINATE
     Indication: DRUG DEPENDENCE
     Dosage: SECOND TRIMESTER 3RD PREGNANCY
     Route: 064

REACTIONS (4)
  - Congenital diaphragmatic hernia [None]
  - Exposure during breast feeding [None]
  - Maternal drugs affecting foetus [None]
  - Foetal exposure during pregnancy [None]
